FAERS Safety Report 4506590-2 (Version None)
Quarter: 2004Q4

REPORT INFORMATION
  Report Type: 
  Country: None (occurrence: None)
  Receive Date: 20041117
  Receipt Date: 20041108
  Transmission Date: 20050328
  Serious: Yes (Death, Other)
  Sender: FDA-Public Use
  Company Number: 2004-10-0465

PATIENT
  Age: 59 Year
  Sex: Male

DRUGS (1)
  1. TEMODAR [Suspect]
     Dosage: ORAL
     Route: 048

REACTIONS (4)
  - ABDOMINAL PAIN [None]
  - FLANK PAIN [None]
  - MESOTHELIOMA [None]
  - PNEUMONIA [None]
